FAERS Safety Report 12538432 (Version 1)
Quarter: 2016Q3

REPORT INFORMATION
  Report Type: Report from Study
  Country: BR (occurrence: BR)
  Receive Date: 20160707
  Receipt Date: 20160707
  Transmission Date: 20161109
  Serious: Yes (Other)
  Sender: FDA-Public Use
  Company Number: BR-AMGEN-BRACT2010007970

PATIENT
  Age: 46 Year
  Sex: Female
  Weight: 55 kg

DRUGS (4)
  1. ETANERCEPT [Suspect]
     Active Substance: ETANERCEPT
     Indication: RHEUMATOID ARTHRITIS
     Dosage: 25 MG, 2 TIMES/WK
     Route: 058
     Dates: start: 20100506
  2. PREDNISONE. [Concomitant]
     Active Substance: PREDNISONE
     Indication: RHEUMATOID ARTHRITIS
     Dosage: 5 MG, 1X/DAY IN THE MORNING
     Dates: start: 2007
  3. CALCIUM D SAUTER                   /01272001/ [Concomitant]
     Indication: RHEUMATOID ARTHRITIS
     Dosage: EVERY DAY
     Dates: start: 2008
  4. ARAVA [Concomitant]
     Active Substance: LEFLUNOMIDE
     Indication: RHEUMATOID ARTHRITIS
     Dosage: ALTERNATE DAY, ONCE DAILY
     Dates: start: 2008

REACTIONS (7)
  - Skin irritation [Not Recovered/Not Resolved]
  - Injection site hypersensitivity [Not Recovered/Not Resolved]
  - Pain [Unknown]
  - Peripheral swelling [Not Recovered/Not Resolved]
  - Injection site pruritus [Not Recovered/Not Resolved]
  - Abdominal distension [Not Recovered/Not Resolved]
  - Injection site erythema [Not Recovered/Not Resolved]

NARRATIVE: CASE EVENT DATE: 20101109
